FAERS Safety Report 23572589 (Version 2)
Quarter: 2024Q3

REPORT INFORMATION
  Report Type: Spontaneous
  Country: US (occurrence: US)
  Receive Date: 20240227
  Receipt Date: 20240822
  Transmission Date: 20241017
  Serious: No
  Sender: AVADEL CNS PHARMA
  Company Number: US-AVADEL CNS PHARMACEUTICALS, LLC-2023AVA00441

PATIENT
  Age: 62 Year
  Sex: Female

DRUGS (12)
  1. LUMRYZ [Suspect]
     Active Substance: SODIUM OXYBATE
     Indication: Narcolepsy
     Dosage: 4.5 G, ONCE NIGHTLY
     Route: 048
     Dates: start: 20231115, end: 2023
  2. LUMRYZ [Suspect]
     Active Substance: SODIUM OXYBATE
     Dosage: 4.5 G, ONCE NIGHTLY
     Route: 048
     Dates: start: 2024, end: 2024
  3. LUMRYZ [Suspect]
     Active Substance: SODIUM OXYBATE
     Indication: Narcolepsy
     Dosage: 6 G, ONCE NIGHTLY
     Route: 048
     Dates: start: 20231207, end: 20231210
  4. LUMRYZ [Suspect]
     Active Substance: SODIUM OXYBATE
     Dosage: 6 G, ONCE NIGHTLY
     Route: 048
     Dates: start: 2024, end: 202403
  5. AMBIEN [Concomitant]
     Active Substance: ZOLPIDEM TARTRATE
  6. B12 ACTIVE [Concomitant]
  7. OZEMPIC [Concomitant]
     Active Substance: SEMAGLUTIDE
     Dosage: ^0.25 OR 0.5^ PEN
  8. VITAMIN D2 [Concomitant]
     Active Substance: ERGOCALCIFEROL
  9. OMEPRAZOLE DELAYED RELEASE [OMEPRAZOLE] [Concomitant]
  10. FLUOXETINE HYDROCHLORIDE [Concomitant]
     Active Substance: FLUOXETINE HYDROCHLORIDE
  11. ADDERALL [Concomitant]
     Active Substance: AMPHETAMINE ASPARTATE\AMPHETAMINE SULFATE\DEXTROAMPHETAMINE SACCHARATE\DEXTROAMPHETAMINE SULFATE
  12. ASPIRIN [Concomitant]
     Active Substance: ASPIRIN

REACTIONS (14)
  - Middle insomnia [Not Recovered/Not Resolved]
  - Insomnia [Not Recovered/Not Resolved]
  - Sedation [Recovering/Resolving]
  - Loss of personal independence in daily activities [Recovering/Resolving]
  - Terminal insomnia [Recovering/Resolving]
  - Tinnitus [Recovering/Resolving]
  - Personality change [Unknown]
  - Mood altered [Unknown]
  - Social avoidant behaviour [Unknown]
  - Dizziness [Recovering/Resolving]
  - Feeling drunk [Unknown]
  - Depressed mood [Unknown]
  - Anxiety [Unknown]
  - Product dose omission issue [Not Recovered/Not Resolved]

NARRATIVE: CASE EVENT DATE: 20231101
